FAERS Safety Report 24751742 (Version 1)
Quarter: 2024Q4

REPORT INFORMATION
  Report Type: Spontaneous
  Country: US (occurrence: US)
  Receive Date: 20241219
  Receipt Date: 20241219
  Transmission Date: 20250114
  Serious: No
  Sender: ROCHE
  Company Number: US-ROCHE-10000161006

PATIENT
  Sex: Female

DRUGS (7)
  1. XOLAIR PFS [Suspect]
     Active Substance: OMALIZUMAB
     Indication: Asthma
     Route: 058
  2. XOLAIR PFS [Suspect]
     Active Substance: OMALIZUMAB
  3. ALBUTEROL [Concomitant]
     Active Substance: ALBUTEROL
  4. CLARITIN [Concomitant]
     Active Substance: LORATADINE
  5. RIZATRIPTAN [Concomitant]
     Active Substance: RIZATRIPTAN
  6. TOPIRAMATE [Concomitant]
     Active Substance: TOPIRAMATE
  7. VILAZODONE [Concomitant]
     Active Substance: VILAZODONE

REACTIONS (1)
  - Asthma [Not Recovered/Not Resolved]
